FAERS Safety Report 15328542 (Version 1)
Quarter: 2018Q3

REPORT INFORMATION
  Report Type: Spontaneous
  Country: US (occurrence: US)
  Receive Date: 20180829
  Receipt Date: 20180829
  Transmission Date: 20181010
  Serious: Yes (Other)
  Sender: FDA-Public Use
  Company Number: US-ROCHE-2175747

PATIENT
  Age: 86 Year
  Sex: Female
  Weight: 67.65 kg

DRUGS (2)
  1. LUCENTIS [Suspect]
     Active Substance: RANIBIZUMAB
     Indication: MACULAR DEGENERATION
     Dosage: IN LEFT EYE
     Route: 050
     Dates: start: 2018
  2. LUCENTIS [Suspect]
     Active Substance: RANIBIZUMAB
     Dosage: LEFT EYE
     Route: 050
     Dates: start: 2018

REACTIONS (6)
  - Chest pain [Recovered/Resolved]
  - Vitreous floaters [Not Recovered/Not Resolved]
  - Fluid retention [Unknown]
  - Morbid thoughts [Recovered/Resolved]
  - Eye pain [Not Recovered/Not Resolved]
  - Scleral discolouration [Not Recovered/Not Resolved]

NARRATIVE: CASE EVENT DATE: 20180823
